FAERS Safety Report 11677404 (Version 1)
Quarter: 2015Q4

REPORT INFORMATION
  Report Type: Report from Study
  Country: NL (occurrence: NL)
  Receive Date: 20151028
  Receipt Date: 20151028
  Transmission Date: 20160304
  Serious: Yes (Other)
  Sender: FDA-Public Use
  Company Number: NL-BAYER-2015-408747

PATIENT
  Age: 40 Year
  Sex: Female

DRUGS (3)
  1. INFLUENZA VACCINE [INFLUENZA VACCINE] [Concomitant]
  2. BETAFERON [Suspect]
     Active Substance: INTERFERON BETA-1B
     Indication: RELAPSING-REMITTING MULTIPLE SCLEROSIS
     Dosage: UNK
     Dates: start: 2007, end: 20150807
  3. BETAFERON [Suspect]
     Active Substance: INTERFERON BETA-1B
     Indication: RELAPSING-REMITTING MULTIPLE SCLEROSIS
     Dosage: 1 ML, UNK
     Dates: start: 20150908

REACTIONS (15)
  - Varicophlebitis [None]
  - Overweight [None]
  - Subcutaneous haematoma [None]
  - Injection site reaction [Recovered/Resolved]
  - Chills [Recovered/Resolved]
  - Nasopharyngitis [Not Recovered/Not Resolved]
  - Feeling cold [Recovered/Resolved]
  - Nausea [Recovered/Resolved]
  - Lipoedema [None]
  - Nasopharyngitis [None]
  - Insomnia [None]
  - Immunodeficiency [None]
  - Influenza [Recovered/Resolved]
  - Influenza [None]
  - Poor quality sleep [None]

NARRATIVE: CASE EVENT DATE: 2015
